FAERS Safety Report 5834779-9 (Version None)
Quarter: 2008Q3

REPORT INFORMATION
  Report Type: 
  Country: None (occurrence: None)
  Receive Date: 20080804
  Receipt Date: 20080723
  Transmission Date: 20090109
  Serious: Yes (Disabling, Other)
  Sender: FDA-Public Use
  Company Number: 163-21880-08070377

PATIENT
  Age: 68 Year
  Sex: Female

DRUGS (1)
  1. REVLIMID [Suspect]
     Indication: DRUG USE FOR UNKNOWN INDICATION
     Dosage: 25 MG, DAILY, ORAL
     Route: 048
     Dates: start: 20080624, end: 20080707

REACTIONS (3)
  - PNEUMONITIS [None]
  - PULMONARY TOXICITY [None]
  - PYREXIA [None]
